FAERS Safety Report 23858469 (Version 1)
Quarter: 2024Q2

REPORT INFORMATION
  Report Type: Spontaneous
  Country: US (occurrence: None)
  Receive Date: 20240514
  Receipt Date: 20240514
  Transmission Date: 20240716
  Serious: Yes (Death)
  Sender: FDA-Public Use
  Company Number: None

PATIENT
  Age: 36 Year
  Sex: Female
  Weight: 43.35 kg

DRUGS (15)
  1. PROLIA [Suspect]
     Active Substance: DENOSUMAB
     Indication: Osteoporosis
     Dosage: 60 MG EVERY 6 MONTHS SUBCUTANEOUS
     Route: 058
     Dates: start: 20220517, end: 20231214
  2. ACETAMINOPHEN 325MG TABLETS [Concomitant]
  3. ASCORBIC ACID GRANULES [Concomitant]
  4. CALCIUM 600MG W/D TABLETS G/S [Concomitant]
  5. DIAZEPAM 2MG TABLETS [Concomitant]
  6. FERROUS SULFATE 325MG (5GR) TABS [Concomitant]
  7. FUROSEMIDE [Concomitant]
     Active Substance: FUROSEMIDE
  8. GRALISE 300MG (GABAPENTIN ER)TABLET [Concomitant]
  9. LACTULOSE [Concomitant]
     Active Substance: LACTULOSE
  10. OMEPRAZOLE [Concomitant]
     Active Substance: DONEPEZIL HYDROCHLORIDE\OMEPRAZOLE\OMEPRAZOLE MAGNESIUM
  11. OXYCODONE 5MG IMMEDIATE REL TABS [Concomitant]
  12. SPIRONOLACTONE [Concomitant]
     Active Substance: SPIRONOLACTONE
  13. VITAMIN D3 400UNIT CHEWTABS [Concomitant]
  14. XIFAXAN [Concomitant]
     Active Substance: RIFAXIMIN
  15. ZINC SULFATE 220MG CAPSULES [Concomitant]

REACTIONS (1)
  - Death [None]

NARRATIVE: CASE EVENT DATE: 20231214
